FAERS Safety Report 10190880 (Version 1)
Quarter: 2014Q2

REPORT INFORMATION
  Report Type: Spontaneous
  Country: US (occurrence: None)
  Receive Date: 20140521
  Receipt Date: 20140521
  Transmission Date: 20141212
  Serious: No
  Sender: FDA-Public Use
  Company Number: None

PATIENT
  Age: 56 Year
  Sex: Female
  Weight: 90.72 kg

DRUGS (1)
  1. CELEBREX 200 MG. [Suspect]
     Indication: OSTEOARTHRITIS
     Route: 048
     Dates: start: 20130601, end: 20140501

REACTIONS (1)
  - Dyspepsia [None]
